FAERS Safety Report 18930094 (Version 3)
Quarter: 2022Q1

REPORT INFORMATION
  Report Type: Spontaneous
  Country: CA (occurrence: CA)
  Receive Date: 20210223
  Receipt Date: 20220131
  Transmission Date: 20220424
  Serious: Yes (Other)
  Sender: FDA-Public Use
  Company Number: CA-BAUSCH-BL-2021-005970

PATIENT
  Age: 54 Year
  Sex: Male

DRUGS (35)
  1. BUPROPION HYDROCHLORIDE [Suspect]
     Active Substance: BUPROPION HYDROCHLORIDE
     Indication: Bipolar disorder
     Route: 048
  2. BUPROPION HYDROCHLORIDE [Suspect]
     Active Substance: BUPROPION HYDROCHLORIDE
     Route: 065
  3. BUPROPION [Suspect]
     Active Substance: BUPROPION
     Indication: Bipolar disorder
     Route: 065
  4. ATAZANAVIR SULFATE [Suspect]
     Active Substance: ATAZANAVIR SULFATE
     Indication: HIV infection
     Route: 065
  5. CLONAZEPAM [Suspect]
     Active Substance: CLONAZEPAM
     Indication: Bipolar disorder
     Route: 065
  6. CLONAZEPAM [Suspect]
     Active Substance: CLONAZEPAM
     Route: 048
  7. ISENTRESS [Suspect]
     Active Substance: RALTEGRAVIR POTASSIUM
     Indication: HIV infection
     Route: 048
  8. ISENTRESS [Suspect]
     Active Substance: RALTEGRAVIR POTASSIUM
     Route: 048
  9. ISENTRESS [Suspect]
     Active Substance: RALTEGRAVIR POTASSIUM
     Route: 065
  10. KALETRA [Suspect]
     Active Substance: LOPINAVIR\RITONAVIR
     Indication: HIV infection
     Route: 065
  11. KALETRA [Suspect]
     Active Substance: LOPINAVIR\RITONAVIR
     Dosage: NOT SPECIFIED
     Route: 048
  12. LAMIVUDINE [Suspect]
     Active Substance: LAMIVUDINE
     Indication: HIV infection
     Dosage: NOT SPECIFIED
     Route: 065
  13. QUETIAPINE [Suspect]
     Active Substance: QUETIAPINE
     Indication: Bipolar disorder
     Route: 048
  14. QUETIAPINE [Suspect]
     Active Substance: QUETIAPINE
     Route: 048
  15. SERTRALINE [Suspect]
     Active Substance: SERTRALINE HYDROCHLORIDE
     Indication: Bipolar disorder
     Route: 065
  16. SERTRALINE [Suspect]
     Active Substance: SERTRALINE HYDROCHLORIDE
     Route: 065
  17. SERTRALINE HYDROCHLORIDE [Suspect]
     Active Substance: SERTRALINE HYDROCHLORIDE
     Indication: Bipolar disorder
     Route: 065
  18. SUSTIVA [Suspect]
     Active Substance: EFAVIRENZ
     Indication: Product used for unknown indication
     Dosage: NOT SPECIFIED
     Route: 048
  19. SUSTIVA [Suspect]
     Active Substance: EFAVIRENZ
     Dosage: NOT SPECIFIED
     Route: 065
  20. SUSTIVA [Suspect]
     Active Substance: EFAVIRENZ
     Dosage: NOT SPECIFIED
     Route: 065
  21. SUSTIVA [Suspect]
     Active Substance: EFAVIRENZ
     Dosage: NOT SPECIFIED
     Route: 065
  22. SUSTIVA [Suspect]
     Active Substance: EFAVIRENZ
     Dosage: NOT SPECIFIED
     Route: 048
  23. VALPROIC ACID [Suspect]
     Active Substance: VALPROIC ACID
     Indication: Bipolar disorder
     Dosage: NOT SPECIFIED
     Route: 065
  24. ZOPICLONE [Suspect]
     Active Substance: ZOPICLONE
     Indication: Bipolar disorder
     Route: 048
  25. ZOPICLONE [Suspect]
     Active Substance: ZOPICLONE
     Route: 065
  26. QUETIAPINE FUMARATE [Suspect]
     Active Substance: QUETIAPINE FUMARATE
     Indication: Bipolar disorder
     Route: 048
  27. QUETIAPINE FUMARATE [Suspect]
     Active Substance: QUETIAPINE FUMARATE
     Route: 065
  28. RALTEGRAVIR POTASSIUM [Suspect]
     Active Substance: RALTEGRAVIR POTASSIUM
     Indication: HIV infection
     Route: 048
  29. RALTEGRAVIR POTASSIUM [Suspect]
     Active Substance: RALTEGRAVIR POTASSIUM
     Route: 048
  30. RALTEGRAVIR POTASSIUM [Suspect]
     Active Substance: RALTEGRAVIR POTASSIUM
     Route: 065
  31. ATAZANAVIR [Suspect]
     Active Substance: ATAZANAVIR
     Indication: HIV infection
     Route: 065
  32. ATAZANAVIR [Suspect]
     Active Substance: ATAZANAVIR
     Indication: HIV infection
     Route: 065
  33. ENFUVIRTIDE [Concomitant]
     Active Substance: ENFUVIRTIDE
     Indication: HIV infection
     Route: 058
  34. ENFUVIRTIDE [Concomitant]
     Active Substance: ENFUVIRTIDE
     Route: 065
  35. ENFUVIRTIDE [Concomitant]
     Active Substance: ENFUVIRTIDE
     Indication: Product used for unknown indication

REACTIONS (3)
  - Drug interaction [Recovered/Resolved]
  - Loss of personal independence in daily activities [Recovered/Resolved]
  - Depression [Recovered/Resolved]
